FAERS Safety Report 17007311 (Version 2)
Quarter: 2019Q4

REPORT INFORMATION
  Report Type: Report from Study
  Country: US (occurrence: US)
  Receive Date: 20191108
  Receipt Date: 20191216
  Transmission Date: 20200122
  Serious: Yes (Hospitalization)
  Sender: FDA-Public Use
  Company Number: US-ROCHE-2460104

PATIENT
  Age: 78 Year
  Sex: Male
  Weight: 87.7 kg

DRUGS (2)
  1. BENDAMUSTINE [Suspect]
     Active Substance: BENDAMUSTINE
     Indication: B-CELL LYMPHOMA
     Dosage: ON 03/OCT/2019, HE RECEIVED LAST DOSE OF INTRAVENOUS BENDAMUSTIN PRIOR TO ONSET OF SERIOUS ADVERSE E
     Route: 042
     Dates: start: 20191002
  2. OBINUTUZUMAB. [Suspect]
     Active Substance: OBINUTUZUMAB
     Indication: B-CELL LYMPHOMA
     Dosage: ON 16/OCT/2019, HE RECEIVED LAST DOSE OF INTRAVENOUS OBINUTUZUMAB PRIOR TO ONSET OF ADVERSE EVENT
     Route: 042
     Dates: start: 20191002

REACTIONS (1)
  - Myalgia [Recovered/Resolved]

NARRATIVE: CASE EVENT DATE: 20191019
